FAERS Safety Report 9787471 (Version 2)
Quarter: 2014Q2

REPORT INFORMATION
  Report Type: Spontaneous
  Country: JP (occurrence: JP)
  Receive Date: 20131230
  Receipt Date: 20140415
  Transmission Date: 20141212
  Serious: Yes (Hospitalization, Other)
  Sender: FDA-Public Use
  Company Number: JP-ROCHE-1323543

PATIENT
  Age: 63 Year
  Sex: Female
  Weight: 27.3 kg

DRUGS (6)
  1. HERCEPTIN [Suspect]
     Indication: BREAST CANCER
     Route: 041
     Dates: start: 20130726, end: 20130726
  2. HERCEPTIN [Suspect]
     Indication: BREAST CANCER
     Route: 041
     Dates: start: 2013, end: 20131025
  3. LOXONIN [Suspect]
     Indication: BREAST CANCER
     Route: 048
     Dates: start: 20131024
  4. LOXONIN [Suspect]
     Indication: PAIN
     Route: 048
     Dates: start: 20131108, end: 20131129
  5. PACLITAXEL [Concomitant]
     Indication: BREAST CANCER
     Route: 041
     Dates: start: 20130705
  6. FEMARA [Concomitant]
     Indication: BREAST CANCER
     Route: 048
     Dates: start: 20131107, end: 20131129

REACTIONS (1)
  - Tubulointerstitial nephritis [Recovered/Resolved with Sequelae]
